FAERS Safety Report 21100962 (Version 2)
Quarter: 2022Q3

REPORT INFORMATION
  Report Type: Spontaneous
  Country: US (occurrence: US)
  Receive Date: 20220719
  Receipt Date: 20220914
  Transmission Date: 20221027
  Serious: No
  Sender: FDA-Public Use
  Company Number: US-PFIZER INC-PV202200023892

PATIENT
  Age: 36 Year
  Sex: Female

DRUGS (1)
  1. XELJANZ XR [Suspect]
     Active Substance: TOFACITINIB CITRATE
     Indication: Rheumatoid arthritis
     Dosage: 11 MG, DAILY
     Route: 048
     Dates: start: 202111

REACTIONS (6)
  - Product dose omission issue [Not Recovered/Not Resolved]
  - Condition aggravated [Unknown]
  - Rheumatoid factor increased [Unknown]
  - Pain [Not Recovered/Not Resolved]
  - Swelling [Unknown]
  - Muscle spasms [Unknown]
